FAERS Safety Report 20670282 (Version 1)
Quarter: 2022Q2

REPORT INFORMATION
  Report Type: Spontaneous
  Country: US (occurrence: None)
  Receive Date: 20220401
  Receipt Date: 20220401
  Transmission Date: 20220721
  Serious: No
  Sender: FDA-Public Use
  Company Number: None

PATIENT
  Sex: Female

DRUGS (1)
  1. ENTYVIO [Suspect]
     Active Substance: VEDOLIZUMAB
     Indication: Crohn^s disease
     Dosage: OTHER STRENGTH : 300MG/VL;?OTHER FREQUENCY : EVERY 6 WEEKS;?
     Route: 042
     Dates: start: 20210302

REACTIONS (1)
  - Therapy non-responder [None]
